FAERS Safety Report 9726084 (Version 2)
Quarter: 2013Q4

REPORT INFORMATION
  Report Type: Spontaneous
  Country: DK (occurrence: DK)
  Receive Date: 20131203
  Receipt Date: 20131216
  Transmission Date: 20140711
  Serious: Yes (Hospitalization)
  Sender: FDA-Public Use
  Company Number: DK-JNJFOC-20131117977

PATIENT
  Sex: Male

DRUGS (2)
  1. XARELTO [Suspect]
     Indication: SURGERY
     Route: 048
  2. XARELTO [Suspect]
     Indication: THROMBOSIS PROPHYLAXIS
     Route: 048

REACTIONS (2)
  - Synovial cyst [Unknown]
  - Haemorrhagic cyst [Unknown]
